FAERS Safety Report 12877276 (Version 1)
Quarter: 2016Q4

REPORT INFORMATION
  Report Type: Spontaneous
  Country: US (occurrence: US)
  Receive Date: 20161021
  Receipt Date: 20161021
  Transmission Date: 20170207
  Serious: No
  Sender: FDA-Public Use
  Company Number: None

PATIENT
  Sex: Male

DRUGS (2)
  1. ZYTIGA [Suspect]
     Active Substance: ABIRATERONE ACETATE
     Indication: PROSTATE CANCER
     Route: 048
     Dates: start: 20160810
  2. ZYTIGA [Suspect]
     Active Substance: ABIRATERONE ACETATE
     Indication: BLADDER CANCER
     Route: 048
     Dates: start: 20160810

REACTIONS (1)
  - Blood urine present [None]
